FAERS Safety Report 6389085-3 (Version None)
Quarter: 2009Q4

REPORT INFORMATION
  Report Type: 
  Country: None (occurrence: None)
  Receive Date: 20091006
  Receipt Date: 20090929
  Transmission Date: 20100525
  Serious: Yes (Hospitalization)
  Sender: FDA-Public Use
  Company Number: US-BIOGENIDEC-2009BI025552

PATIENT
  Sex: Male

DRUGS (1)
  1. TYSABRI [Suspect]
     Indication: CROHN'S DISEASE
     Route: 042
     Dates: start: 20090311, end: 20090909

REACTIONS (5)
  - CROHN'S DISEASE [None]
  - DECREASED APPETITE [None]
  - DRUG INEFFECTIVE [None]
  - GALLBLADDER DISORDER [None]
  - OROPHARYNGEAL PAIN [None]
